FAERS Safety Report 5925958-0 (Version None)
Quarter: 2008Q4

REPORT INFORMATION
  Report Type: 
  Country: None (occurrence: None)
  Receive Date: 20081021
  Receipt Date: 20081010
  Transmission Date: 20090506
  Serious: Yes (Other)
  Sender: FDA-Public Use
  Company Number: AU-PFIZER INC-2008085987

PATIENT
  Age: 55 Year
  Sex: Male

DRUGS (2)
  1. PYRALIN [Suspect]
     Indication: CROHN'S DISEASE
  2. SALAZOPYRIN EN [Suspect]
     Indication: CROHN'S DISEASE

REACTIONS (1)
  - HAEMORRHAGE [None]
